FAERS Safety Report 10483379 (Version 1)
Quarter: 2014Q3

REPORT INFORMATION
  Report Type: Spontaneous
  Country: US (occurrence: US)
  Receive Date: 20140930
  Receipt Date: 20140930
  Transmission Date: 20150326
  Serious: Yes (Hospitalization, Other)
  Sender: FDA-Public Use
  Company Number: US-ASTRAZENECA-2014SE72270

PATIENT
  Age: 80 Year
  Sex: Male
  Weight: 59 kg

DRUGS (2)
  1. SYMBICORT [Suspect]
     Active Substance: BUDESONIDE\FORMOTEROL FUMARATE DIHYDRATE
     Indication: DYSPNOEA
     Dosage: 160/4.5 MCG, 320 MCG BID
     Route: 055
     Dates: start: 2011
  2. SYMBICORT [Suspect]
     Active Substance: BUDESONIDE\FORMOTEROL FUMARATE DIHYDRATE
     Indication: BACK PAIN
     Dosage: 160/4.5 MCG, 320 MCG BID
     Route: 055
     Dates: start: 2011

REACTIONS (5)
  - Eye disorder [Unknown]
  - Cataract [Recovered/Resolved]
  - Intentional product misuse [Unknown]
  - Pneumonia [Recovered/Resolved]
  - Device misuse [Unknown]

NARRATIVE: CASE EVENT DATE: 2011
